FAERS Safety Report 5633337-9 (Version None)
Quarter: 2008Q1

REPORT INFORMATION
  Report Type: 
  Country: None (occurrence: None)
  Receive Date: 20080221
  Receipt Date: 20080220
  Transmission Date: 20080703
  Serious: Yes (Other)
  Sender: FDA-Public Use
  Company Number: US-JNJFOC-20080203245

PATIENT
  Sex: Male

DRUGS (9)
  1. MOTRIN [Suspect]
  2. MOTRIN [Suspect]
  3. MOTRIN [Suspect]
     Indication: HEADACHE
  4. FLUCONAZOLE [Concomitant]
  5. BACTRIM [Concomitant]
  6. VIDEX [Concomitant]
     Indication: ANTIRETROVIRAL THERAPY
     Route: 048
  7. VIREAD [Concomitant]
     Indication: ANTIRETROVIRAL THERAPY
     Route: 048
  8. NORVIR [Concomitant]
     Indication: ANTIRETROVIRAL THERAPY
     Route: 048
  9. ATAZANAVIR SULFATE [Concomitant]
     Indication: ANTIRETROVIRAL THERAPY
     Route: 048

REACTIONS (2)
  - INTENTIONAL OVERDOSE [None]
  - SUICIDE ATTEMPT [None]
